FAERS Safety Report 6466591-4 (Version None)
Quarter: 2009Q4

REPORT INFORMATION
  Report Type: 
  Country: None (occurrence: None)
  Receive Date: 20091202
  Receipt Date: 20091116
  Transmission Date: 20100525
  Serious: Yes (Hospitalization)
  Sender: FDA-Public Use
  Company Number: DE-ASTRAZENECA-2009SE27473

PATIENT
  Age: 69 Year
  Sex: Female

DRUGS (5)
  1. SEROQUEL [Suspect]
     Indication: DEMENTIA ALZHEIMER'S TYPE
     Route: 048
     Dates: end: 20090514
  2. SEROQUEL [Suspect]
     Route: 048
     Dates: start: 20090515, end: 20090612
  3. SEROQUEL [Suspect]
     Route: 048
     Dates: start: 20090613
  4. REMINYL [Suspect]
     Route: 048
     Dates: start: 20080401
  5. DELIX [Concomitant]
     Route: 048
     Dates: start: 20090529

REACTIONS (1)
  - PLEUROTHOTONUS [None]
